FAERS Safety Report 7610225-X (Version None)
Quarter: 2011Q3

REPORT INFORMATION
  Report Type: 
  Country: None (occurrence: None)
  Receive Date: 20110715
  Receipt Date: 20110707
  Transmission Date: 20111222
  Serious: Yes (Hospitalization)
  Sender: FDA-Public Use
  Company Number: DK-AMGEN-DNKSP2011011335

PATIENT
  Age: 60 Year
  Sex: Male
  Weight: 90 kg

DRUGS (9)
  1. PREDNISOLONE [Concomitant]
     Dosage: UNK
  2. IBUPROFEN [Concomitant]
     Dosage: 400 MG, 3XDAY
     Route: 048
  3. SIMVASTATIN [Concomitant]
     Dosage: 20 MG, DAILY
     Route: 048
  4. ENBREL [Suspect]
     Indication: PRODUCT USED FOR UNKNOWN INDICATION
     Dosage: 50 MG, WEEKLY
     Dates: start: 20100226, end: 20101116
  5. ALENDRONATE SODIUM [Concomitant]
     Dosage: 70 MG, WEEKLY
     Route: 048
  6. METHOTREXATE SODIUM [Concomitant]
     Dosage: 25 MG ,WEEKLY
  7. REMICADE [Suspect]
     Indication: SERONEGATIVE ARTHRITIS
     Dosage: 300 MG, FRERQUENCY UNKNOWN, GIVEN TOTALLY 4 TIMES
     Route: 042
     Dates: start: 20090907, end: 20091215
  8. CODEINE SUL TAB [Concomitant]
     Dosage: 1 G, 3 TIMES
     Route: 048
  9. FOLIMET [Concomitant]
     Dosage: 5 MG, 1X/DAY
     Route: 048

REACTIONS (1)
  - LANGERHANS' CELL HISTIOCYTOSIS [None]
